FAERS Safety Report 20790235 (Version 1)
Quarter: 2022Q2

REPORT INFORMATION
  Report Type: Report from Study
  Country: JP (occurrence: JP)
  Receive Date: 20220505
  Receipt Date: 20220505
  Transmission Date: 20220720
  Serious: Yes (Life-Threatening, Hospitalization, Disabling, Other)
  Sender: FDA-Public Use
  Company Number: JP-Recordati Rare Diseases Inc.-JP-R13005-20-00122

PATIENT
  Age: 0 Year
  Sex: Male
  Weight: .805 kg

DRUGS (51)
  1. NEOPROFEN [Suspect]
     Active Substance: IBUPROFEN LYSINE
     Indication: Patent ductus arteriosus
     Dosage: 8 MILLIGRAM, QD
     Route: 042
     Dates: start: 20190107, end: 20190107
  2. NEOPROFEN [Suspect]
     Active Substance: IBUPROFEN LYSINE
     Dosage: 8 MILLIGRAM, QD
     Route: 042
     Dates: start: 20190111, end: 20190111
  3. NEOPROFEN [Suspect]
     Active Substance: IBUPROFEN LYSINE
     Dosage: 4 MILLIGRAM, QD
     Route: 042
     Dates: start: 20190112, end: 20190112
  4. NEOPROFEN [Suspect]
     Active Substance: IBUPROFEN LYSINE
     Dosage: 4 MILLIGRAM, QD
     Route: 042
     Dates: start: 20190113, end: 20190113
  5. NEOPROFEN [Suspect]
     Active Substance: IBUPROFEN LYSINE
     Dosage: 8 MILLIGRAM, QD
     Route: 042
     Dates: start: 20190121, end: 20190121
  6. NEOPROFEN [Suspect]
     Active Substance: IBUPROFEN LYSINE
     Dosage: 4 MILLIGRAM, QD
     Route: 042
     Dates: start: 20190122, end: 20190122
  7. NEOPROFEN [Suspect]
     Active Substance: IBUPROFEN LYSINE
     Dosage: 4 MILLIGRAM, QD
     Route: 042
     Dates: start: 20190123, end: 20190123
  8. SURFACTEN [Concomitant]
     Indication: Neonatal respiratory distress syndrome
     Dosage: UNK
     Route: 055
     Dates: start: 20190106, end: 20190107
  9. SURFACTEN [Concomitant]
     Indication: Pulmonary haemorrhage
  10. MEYLON [Concomitant]
     Active Substance: SODIUM BICARBONATE
     Indication: Acidosis
     Dosage: UNK, UNK
     Route: 042
     Dates: start: 20190106, end: 20190107
  11. VENOGLOBULIN IH [Concomitant]
     Active Substance: HUMAN IMMUNOGLOBULIN G
     Indication: Intrauterine infection
     Dosage: UNK, UNK
     Route: 042
     Dates: start: 20190106, end: 20190108
  12. FACTOR XIII CONCENTRATE (HUMAN) [Concomitant]
     Active Substance: FACTOR XIII CONCENTRATE (HUMAN)
     Indication: Coagulopathy
     Dosage: UNK, UNK
     Route: 042
     Dates: start: 20190106, end: 20190109
  13. FACTOR XIII CONCENTRATE (HUMAN) [Concomitant]
     Active Substance: FACTOR XIII CONCENTRATE (HUMAN)
     Indication: Haemorrhage intracranial
  14. FACTOR XIII CONCENTRATE (HUMAN) [Concomitant]
     Active Substance: FACTOR XIII CONCENTRATE (HUMAN)
     Indication: Condition aggravated
  15. NEUART [Concomitant]
     Active Substance: ANTITHROMBIN III HUMAN
     Indication: Coagulopathy
     Dosage: UNK, UNK
     Route: 042
     Dates: start: 20190106, end: 20190109
  16. NEUART [Concomitant]
     Active Substance: ANTITHROMBIN III HUMAN
     Indication: Haemorrhage intracranial
  17. NEUART [Concomitant]
     Active Substance: ANTITHROMBIN III HUMAN
     Indication: Condition aggravated
  18. AMIKACIN [Concomitant]
     Active Substance: AMIKACIN
     Indication: Intrauterine infection
     Dosage: UNK, UNK
     Route: 042
     Dates: start: 20190106, end: 20190109
  19. SOLU-CORTEF [Concomitant]
     Active Substance: HYDROCORTISONE SODIUM SUCCINATE
     Indication: Circulatory collapse
     Dosage: UNK, UNK
     Route: 042
     Dates: start: 20190106, end: 20190110
  20. MEROPENEM [Concomitant]
     Active Substance: MEROPENEM
     Indication: Intrauterine infection
     Dosage: UNK, UNK
     Route: 042
     Dates: start: 20190106, end: 20190111
  21. MICAFUNGIN SODIUM [Concomitant]
     Active Substance: MICAFUNGIN SODIUM
     Indication: Infection prophylaxis
     Dosage: UNK, UNK
     Route: 042
     Dates: start: 20190106, end: 20190116
  22. DOPAMINE [Concomitant]
     Active Substance: DOPAMINE HYDROCHLORIDE
     Indication: Patent ductus arteriosus
     Dosage: UNK, UNK
     Route: 042
     Dates: start: 20190106, end: 20190131
  23. DOPAMINE [Concomitant]
     Active Substance: DOPAMINE HYDROCHLORIDE
     Indication: Circulatory collapse
  24. DOBUTAMINE [Concomitant]
     Active Substance: DOBUTAMINE HYDROCHLORIDE
     Indication: Patent ductus arteriosus
     Dosage: UNK, UNK
     Route: 042
     Dates: start: 20190106, end: 20190131
  25. DOBUTAMINE [Concomitant]
     Active Substance: DOBUTAMINE HYDROCHLORIDE
     Indication: Circulatory collapse
  26. BOSMIN [EPINEPHRINE HYDROCHLORIDE] [Concomitant]
     Indication: Patent ductus arteriosus
     Dosage: UNK, UNK
     Route: 042
     Dates: start: 20190109, end: 20190117
  27. BOSMIN [EPINEPHRINE HYDROCHLORIDE] [Concomitant]
     Indication: Circulatory collapse
  28. FENTANYL [Concomitant]
     Active Substance: FENTANYL
     Indication: Haemorrhage intracranial
     Dosage: UNK, UNK
     Route: 042
     Dates: start: 20190107, end: 20190111
  29. FENTANYL [Concomitant]
     Active Substance: FENTANYL
     Indication: Condition aggravated
  30. MIDAZOLAM [Concomitant]
     Active Substance: MIDAZOLAM
     Indication: Haemorrhage intracranial
     Dosage: UNK, UNK
     Route: 042
     Dates: start: 20190107, end: 20190111
  31. MIDAZOLAM [Concomitant]
     Active Substance: MIDAZOLAM
     Indication: Condition aggravated
  32. MIDAZOLAM [Concomitant]
     Active Substance: MIDAZOLAM
     Indication: Seizure
  33. MENATETRENONE [Concomitant]
     Active Substance: MENATETRENONE
     Indication: Coagulopathy
     Dosage: UNK, UNK
     Route: 042
     Dates: start: 20190107, end: 20190111
  34. MENATETRENONE [Concomitant]
     Active Substance: MENATETRENONE
     Indication: Vitamin supplementation
  35. PHENOBARBITAL SODIUM [Concomitant]
     Active Substance: PHENOBARBITAL SODIUM
     Indication: Haemorrhage intracranial
     Dosage: UNK, UNK
     Route: 042
     Dates: start: 20190107, end: 20190130
  36. PHENOBARBITAL SODIUM [Concomitant]
     Active Substance: PHENOBARBITAL SODIUM
     Indication: Condition aggravated
  37. PHENOBARBITAL SODIUM [Concomitant]
     Active Substance: PHENOBARBITAL SODIUM
     Indication: Seizure
  38. FLORID D [Concomitant]
     Indication: Necrotising colitis
     Dosage: UNK, UNK
     Route: 048
     Dates: start: 20190107, end: 20190214
  39. FLORID D [Concomitant]
     Indication: Prophylaxis
  40. MILRINONE [Concomitant]
     Active Substance: MILRINONE
     Indication: Circulatory collapse
     Dosage: UNK, UNK
     Route: 042
     Dates: start: 20190108, end: 20190109
  41. FUROSEMIDE [Concomitant]
     Active Substance: FUROSEMIDE
     Indication: Patent ductus arteriosus
     Dosage: UNK, UNK
     Route: 042
     Dates: start: 20190108, end: 20190129
  42. FUROSEMIDE [Concomitant]
     Active Substance: FUROSEMIDE
     Indication: Pulmonary haemorrhage
  43. FUROSEMIDE [Concomitant]
     Active Substance: FUROSEMIDE
     Indication: Renal disorder
  44. ALBUMIN (HUMAN) [Concomitant]
     Active Substance: ALBUMIN HUMAN
     Indication: Circulatory collapse
     Dosage: UNK, UNK
     Route: 042
     Dates: start: 20190109, end: 20190111
  45. CLAFORAN [Concomitant]
     Active Substance: CEFOTAXIME SODIUM
     Indication: Intrauterine infection
     Dosage: UNK, UNK
     Route: 042
     Dates: start: 20190111, end: 20190120
  46. FLUTIDE NASETTEN [Concomitant]
     Indication: Lung disorder
     Dosage: UNK, UNK
     Route: 055
     Dates: start: 20190115, end: 20190131
  47. FLUTIDE NASETTEN [Concomitant]
     Indication: Prophylaxis
  48. SOYBEAN OIL [Concomitant]
     Active Substance: SOYBEAN OIL
     Indication: Nutritional supplementation
     Dosage: UNK, UNK
     Route: 042
     Dates: start: 20190117, end: 20190121
  49. UNSPECIFIED INGREDIENT [Concomitant]
     Active Substance: UNSPECIFIED INGREDIENT
     Indication: Blood bilirubin increased
     Dosage: UNK, UNK
     Route: 048
     Dates: start: 20190121, end: 20190418
  50. URSO 1A PHARMA [Concomitant]
     Indication: Blood bilirubin increased
     Dosage: UNK, UNK
     Route: 048
     Dates: start: 20190121, end: 20190418
  51. LEVOTHYROXINE SODIUM [Concomitant]
     Active Substance: LEVOTHYROXINE SODIUM
     Indication: Hypothyroidism
     Dosage: UNK, UNK
     Route: 048
     Dates: start: 20190121, end: 20190509

REACTIONS (8)
  - Posthaemorrhagic hydrocephalus [Recovered/Resolved with Sequelae]
  - Hypothyroidism [Recovered/Resolved]
  - White blood cell count increased [Recovered/Resolved]
  - Bilirubin conjugated increased [Recovered/Resolved]
  - Retinopathy of prematurity [Recovering/Resolving]
  - Intraventricular haemorrhage [Recovered/Resolved with Sequelae]
  - Blood creatinine increased [Recovered/Resolved]
  - Seizure [Recovering/Resolving]

NARRATIVE: CASE EVENT DATE: 20190107
